FAERS Safety Report 17074035 (Version 4)
Quarter: 2020Q1

REPORT INFORMATION
  Report Type: Spontaneous
  Country: US (occurrence: US)
  Receive Date: 20191126
  Receipt Date: 20200120
  Transmission Date: 20200409
  Serious: Yes (Other)
  Sender: FDA-Public Use
  Company Number: US-AEGERION PHARMACEUTICAL, INC-AEGR004577

PATIENT
  Sex: Male
  Weight: 16.78 kg

DRUGS (2)
  1. MYALEPT [Suspect]
     Active Substance: METRELEPTIN
     Indication: CONGENITAL GENERALISED LIPODYSTROPHY
     Dosage: 0.06 MG/KG, QD
     Route: 058
     Dates: start: 20170627
  2. MYALEPT [Suspect]
     Active Substance: METRELEPTIN
     Dosage: 1.23 MG, UNK
     Route: 058

REACTIONS (17)
  - Condition aggravated [Unknown]
  - Hyperphagia [Unknown]
  - Drug ineffective [Unknown]
  - Treatment noncompliance [Unknown]
  - Hypertriglyceridaemia [Unknown]
  - Dyspnoea [Unknown]
  - Agitation [Unknown]
  - Weight increased [Unknown]
  - Metabolic function test abnormal [Unknown]
  - Therapy cessation [Unknown]
  - Abdominal distension [Unknown]
  - Diet noncompliance [Unknown]
  - Diabetes mellitus [Unknown]
  - Insulin resistance [Unknown]
  - Hepatic steatosis [Unknown]
  - Pigmentation disorder [Unknown]
  - Sleep disorder [Unknown]
